FAERS Safety Report 4680220-1 (Version None)
Quarter: 2005Q2

REPORT INFORMATION
  Report Type: 
  Country: None (occurrence: None)
  Receive Date: 20050531
  Receipt Date: 20041022
  Transmission Date: 20051028
  Serious: Yes (Hospitalization)
  Sender: FDA-Public Use
  Company Number: BE-2004-033530

PATIENT
  Sex: Male

DRUGS (2)
  1. QUADRAMET [Suspect]
     Indication: PROSTATE CANCER
     Dosage: 60 MCL INTRAVENOUS
     Route: 042
     Dates: start: 20041013, end: 20041013
  2. SODIUM CHLORIDE [Concomitant]

REACTIONS (3)
  - EXTRAVASATION [None]
  - INCORRECT ROUTE OF DRUG ADMINISTRATION [None]
  - INJECTION SITE REACTION [None]
